FAERS Safety Report 16148496 (Version 1)
Quarter: 2019Q2

REPORT INFORMATION
  Report Type: Report from Study
  Country: GB (occurrence: GB)
  Receive Date: 20190402
  Receipt Date: 20190402
  Transmission Date: 20190711
  Serious: Yes (Other)
  Sender: FDA-Public Use
  Company Number: GB-ASPEN-GLO2018GB013317

PATIENT
  Sex: Female

DRUGS (3)
  1. NINLARO [Suspect]
     Active Substance: IXAZOMIB CITRATE
     Indication: PLASMA CELL MYELOMA
     Dosage: UNK
     Route: 048
  2. DEXAMETHASONE. [Suspect]
     Active Substance: DEXAMETHASONE
     Indication: PLASMA CELL MYELOMA
     Dosage: UNK
     Route: 065
  3. OMEPRAZOLE. [Concomitant]
     Active Substance: OMEPRAZOLE
     Indication: PRODUCT USED FOR UNKNOWN INDICATION
     Dosage: 2 UNK, QD
     Route: 065

REACTIONS (20)
  - Alopecia [Unknown]
  - Oral pain [Unknown]
  - Quality of life decreased [Unknown]
  - Nail disorder [Unknown]
  - Oropharyngeal pain [Unknown]
  - Drug intolerance [Unknown]
  - Gastrooesophageal reflux disease [Unknown]
  - Malaise [Unknown]
  - Burning sensation [Unknown]
  - Urinary tract disorder [Unknown]
  - Adverse event [Unknown]
  - Fatigue [Unknown]
  - Diarrhoea [Unknown]
  - Monoclonal immunoglobulin present [Unknown]
  - Blood pressure decreased [Unknown]
  - Plasma cell myeloma [Unknown]
  - Pain [Unknown]
  - Off label use [Unknown]
  - Pruritus [Unknown]
  - Confusional state [Unknown]
